FAERS Safety Report 5614576-X (Version None)
Quarter: 2008Q1

REPORT INFORMATION
  Report Type: 
  Country: None (occurrence: None)
  Receive Date: 20080205
  Receipt Date: 20080110
  Transmission Date: 20080703
  Serious: No
  Sender: FDA-Public Use
  Company Number: US-BOEHRINGER INGELHEIM GMBH, GERMANY-2007-BP-26009BP

PATIENT
  Sex: Male

DRUGS (10)
  1. SPIRIVA [Suspect]
     Indication: CHRONIC OBSTRUCTIVE PULMONARY DISEASE
     Route: 055
     Dates: start: 20070101, end: 20070101
  2. THEOPHYLLINE [Concomitant]
  3. PRILOSEC [Concomitant]
  4. ZOCOR [Concomitant]
  5. AVANDIA [Concomitant]
  6. LORPESSOR [Concomitant]
  7. GLIPIZIDE [Concomitant]
  8. THEO-DUR [Concomitant]
  9. COMBIVENT [Concomitant]
     Route: 055
  10. ALBUTEROL W/IPTRATROPIUM [Concomitant]
     Route: 055

REACTIONS (2)
  - ADVERSE DRUG REACTION [None]
  - RASH [None]
